FAERS Safety Report 8434097-9 (Version None)
Quarter: 2012Q2

REPORT INFORMATION
  Report Type: 
  Country: None (occurrence: None)
  Receive Date: 20120613
  Receipt Date: 20120531
  Transmission Date: 20120825
  Serious: No
  Sender: FDA-Public Use
  Company Number: US-ASTRAZENECA-2012SE36718

PATIENT
  Age: 51 Year
  Sex: Female

DRUGS (7)
  1. DEXILANT [Concomitant]
  2. LISINOPRIL [Suspect]
     Dosage: 20/25 MG
     Route: 048
  3. PRAVASTATIN [Concomitant]
  4. CRESTOR [Suspect]
     Route: 048
  5. ACTOS [Concomitant]
  6. METFORMIN HCL [Concomitant]
  7. LEVOTHYROXINE SODIUM [Concomitant]

REACTIONS (1)
  - CONDITION AGGRAVATED [None]
